FAERS Safety Report 5023110-7 (Version None)
Quarter: 2006Q2

REPORT INFORMATION
  Report Type: 
  Country: None (occurrence: None)
  Receive Date: 20060605
  Receipt Date: 20060519
  Transmission Date: 20061013
  Serious: Yes (Other)
  Sender: FDA-Public Use
  Company Number: GB200605004332

PATIENT
  Age: 34 Year
  Sex: Male

DRUGS (8)
  1. ZYPREXA [Suspect]
     Dosage: 20 MG, DAILY (1/D)
     Dates: start: 20060302
  2. CLOZAPINE [Concomitant]
  3. VALPROIC ACID [Concomitant]
  4. AMISULPRIDE (AMISULPRIDE) [Concomitant]
  5. VENLAFAXINE HCL [Concomitant]
  6. LANSOPRAZOLE [Concomitant]
  7. ARIPIPRAZOLE (ARIPIPRAZOLE) [Concomitant]
  8. PROPRANOLOL [Concomitant]

REACTIONS (2)
  - NEUTROPENIA [None]
  - WHITE BLOOD CELL COUNT DECREASED [None]
